FAERS Safety Report 16719976 (Version 3)
Quarter: 2019Q4

REPORT INFORMATION
  Report Type: Spontaneous
  Country: US (occurrence: US)
  Receive Date: 20190820
  Receipt Date: 20191122
  Transmission Date: 20200122
  Serious: Yes (Other)
  Sender: FDA-Public Use
  Company Number: US-PFIZER INC-2019354867

PATIENT
  Age: 40 Year
  Sex: Female
  Weight: 82 kg

DRUGS (1)
  1. IBRANCE [Suspect]
     Active Substance: PALBOCICLIB
     Indication: BREAST CANCER FEMALE
     Dosage: 125 MG, CYCLIC (ONCE A DAY FOR 3 WEEKS AND THEN A WEEK OFF)
     Route: 048

REACTIONS (4)
  - Pulmonary congestion [Unknown]
  - Pneumonitis [Unknown]
  - Gastrooesophageal reflux disease [Recovering/Resolving]
  - Neoplasm progression [Unknown]
